FAERS Safety Report 20256265 (Version 2)
Quarter: 2022Q1

REPORT INFORMATION
  Report Type: Spontaneous
  Country: BR (occurrence: BR)
  Receive Date: 20211230
  Receipt Date: 20220118
  Transmission Date: 20220423
  Serious: Yes (Death, Hospitalization, Other)
  Sender: FDA-Public Use
  Company Number: BR-PFIZER INC-202101825742

PATIENT
  Age: 8 Decade
  Sex: Female

DRUGS (1)
  1. AROMASIN [Suspect]
     Active Substance: EXEMESTANE
     Indication: Breast cancer metastatic
     Dosage: 25 MG, DAILY
     Dates: end: 202112

REACTIONS (2)
  - Disease progression [Fatal]
  - Eastern Cooperative Oncology Group performance status worsened [Fatal]

NARRATIVE: CASE EVENT DATE: 20211201
